FAERS Safety Report 8130042-4 (Version None)
Quarter: 2012Q1

REPORT INFORMATION
  Report Type: 
  Country: None (occurrence: None)
  Receive Date: 20120210
  Receipt Date: 20120207
  Transmission Date: 20120608
  Serious: Yes (Disabling, Other)
  Sender: FDA-Public Use
  Company Number: US-PFIZER INC-2011122538

PATIENT
  Sex: Female
  Weight: 104.31 kg

DRUGS (6)
  1. TIGAN [Suspect]
     Indication: NAUSEA
     Dosage: 300 MG, 3 TO 4 TIMES A DAY
     Route: 048
  2. AMITRIPTYLINE HCL [Suspect]
     Indication: IRRITABLE BOWEL SYNDROME
     Dosage: 25 MG DAILY
     Route: 048
     Dates: start: 19930101
  3. HYOMAX SR [Suspect]
     Indication: NAUSEA
     Dosage: 0.375 MG, TWO TO THREE TABLETS A DAY
     Route: 048
  4. LEVBID [Suspect]
     Indication: NAUSEA
     Dosage: UNK
     Route: 048
     Dates: end: 19930101
  5. XANAX [Suspect]
     Indication: IRRITABLE BOWEL SYNDROME
     Dosage: 0.5 MG, 3 TO 4 TIMES A DAY
     Route: 048
     Dates: start: 19930101
  6. ELAVIL [Suspect]
     Indication: IRRITABLE BOWEL SYNDROME
     Dosage: UNK
     Route: 048
     Dates: start: 19930101, end: 19930101

REACTIONS (9)
  - BREAST CANCER [None]
  - MENTAL IMPAIRMENT [None]
  - SINUSITIS [None]
  - DISTURBANCE IN ATTENTION [None]
  - HYPERVENTILATION [None]
  - FIBROMYALGIA [None]
  - HYPERTENSION [None]
  - NAUSEA [None]
  - INSOMNIA [None]
